FAERS Safety Report 9943652 (Version 1)
Quarter: 2014Q1

REPORT INFORMATION
  Report Type: Report from Study
  Country: US (occurrence: US)
  Receive Date: 20140303
  Receipt Date: 20140303
  Transmission Date: 20141002
  Serious: No
  Sender: FDA-Public Use
  Company Number: US-ABBVIE-13P-163-1047924-00

PATIENT
  Age: 37 Year
  Sex: Male

DRUGS (4)
  1. HUMIRA [Suspect]
     Indication: CROHN^S DISEASE
     Dates: start: 20110628
  2. PROPRANOLOL [Concomitant]
     Indication: PROPHYLAXIS
  3. PENTASA [Concomitant]
     Indication: CROHN^S DISEASE
     Dosage: DAILY
  4. HYOSCIAMINE [Concomitant]
     Indication: CONSTIPATION

REACTIONS (2)
  - Pain [Recovering/Resolving]
  - Nasopharyngitis [Recovering/Resolving]
